FAERS Safety Report 4989101-7 (Version None)
Quarter: 2006Q2

REPORT INFORMATION
  Report Type: 
  Country: None (occurrence: None)
  Receive Date: 20060425
  Receipt Date: 20060410
  Transmission Date: 20061013
  Serious: Yes (Hospitalization)
  Sender: FDA-Public Use
  Company Number: IND-AE-06-SAN-018

PATIENT
  Age: 78 Year
  Sex: Female
  Weight: 59.4212 kg

DRUGS (3)
  1. SANCTURA [Suspect]
     Indication: INCONTINENCE
     Dosage: 20MG -QD - ORAL
     Route: 048
     Dates: start: 20051201, end: 20051221
  2. LOZOL [Concomitant]
  3. LESCOL [Concomitant]

REACTIONS (4)
  - ANURIA [None]
  - DECREASED APPETITE [None]
  - PYELONEPHRITIS [None]
  - URINE OUTPUT DECREASED [None]
